FAERS Safety Report 11246852 (Version 1)
Quarter: 2015Q3

REPORT INFORMATION
  Report Type: Spontaneous
  Country: US (occurrence: US)
  Receive Date: 20150708
  Receipt Date: 20150708
  Transmission Date: 20151125
  Serious: No
  Sender: FDA-Public Use
  Company Number: US-BIOGENIDEC-2015BI093687

PATIENT
  Age: 40 Year
  Sex: Female

DRUGS (1)
  1. AVONEX [Suspect]
     Active Substance: INTERFERON BETA-1A
     Indication: MULTIPLE SCLEROSIS
     Route: 030
     Dates: start: 200408

REACTIONS (12)
  - Gait disturbance [Unknown]
  - Panic disorder [Unknown]
  - Oesophagitis [Unknown]
  - Hypersensitivity [Unknown]
  - Syncope [Unknown]
  - Malaise [Unknown]
  - Sensory loss [Unknown]
  - Liver disorder [Unknown]
  - Necrosis [Unknown]
  - Headache [Unknown]
  - Injection site discolouration [Unknown]
  - Influenza [Unknown]
